FAERS Safety Report 16726681 (Version 1)
Quarter: 2019Q3

REPORT INFORMATION
  Report Type: Spontaneous
  Country: PT (occurrence: PT)
  Receive Date: 20190821
  Receipt Date: 20190821
  Transmission Date: 20191005
  Serious: Yes (Other)
  Sender: FDA-Public Use
  Company Number: PT-PRINSTON PHARMACEUTICAL INC.-2019PRN00761

PATIENT
  Age: 48 Year
  Sex: Female

DRUGS (12)
  1. CASCARA SAGRADA [Suspect]
     Active Substance: FRANGULA PURSHIANA BARK
     Indication: WEIGHT CONTROL
     Route: 048
  2. METFORMIN HYDROCHLORIDE. [Concomitant]
     Active Substance: METFORMIN HYDROCHLORIDE
     Indication: WEIGHT CONTROL
     Route: 048
  3. BUPROPION. [Concomitant]
     Active Substance: BUPROPION
     Indication: WEIGHT CONTROL
     Route: 048
  4. CHROMIUM  PICOLINATE [Concomitant]
     Active Substance: CHROMIUM PICOLINATE
     Indication: WEIGHT CONTROL
     Route: 048
  5. CENTELLA ASIATICA [Concomitant]
     Active Substance: CENTELLA ASIATICA
     Indication: WEIGHT CONTROL
     Route: 048
  6. ORLISTAT. [Concomitant]
     Active Substance: ORLISTAT
     Indication: WEIGHT CONTROL
     Route: 048
  7. PHENOLPHTHALEIN [Suspect]
     Active Substance: PHENOLPHTHALEIN
     Indication: WEIGHT CONTROL
     Route: 048
  8. FUROSEMIDE. [Suspect]
     Active Substance: FUROSEMIDE
     Indication: WEIGHT CONTROL
     Route: 048
  9. ETHINYLESTRADIOL 0.030 MG + GESTODENE 0.075 MG [Suspect]
     Active Substance: ETHINYL ESTRADIOL\GESTODENE
     Route: 048
  10. CHLORDIAZEPOXIDE. [Concomitant]
     Active Substance: CHLORDIAZEPOXIDE
     Indication: WEIGHT CONTROL
     Route: 048
  11. TOPIRAMATE. [Concomitant]
     Active Substance: TOPIRAMATE
     Indication: WEIGHT CONTROL
     Route: 048
  12. SENNA [Suspect]
     Active Substance: SENNA LEAF\SENNOSIDES\SENNOSIDES A AND B
     Indication: WEIGHT CONTROL
     Route: 048

REACTIONS (3)
  - Dehydration [Unknown]
  - Cerebral venous thrombosis [Unknown]
  - Potentiating drug interaction [Unknown]
